FAERS Safety Report 5330655-9 (Version None)
Quarter: 2007Q2

REPORT INFORMATION
  Report Type: 
  Country: None (occurrence: None)
  Receive Date: 20070522
  Receipt Date: 20070517
  Transmission Date: 20071010
  Serious: Yes (Hospitalization)
  Sender: FDA-Public Use
  Company Number: ??-RB-006406-07

PATIENT
  Age: 30 Year
  Sex: Female

DRUGS (2)
  1. SUBUTEX [Suspect]
     Dosage: DOSAGE UNKNOWN - 12MG QD TAKEN ORALLY AS WELL AS INHALED.
     Route: 048
     Dates: start: 20050601
  2. SUBUTEX [Suspect]
     Dosage: DOSAGE UNKNOWN - 12MG QD - TAKEN ORALLY AS WELL AS INHALED.
     Route: 055
     Dates: start: 20050601

REACTIONS (2)
  - CHRONIC OBSTRUCTIVE PULMONARY DISEASE [None]
  - INTENTIONAL DRUG MISUSE [None]
